FAERS Safety Report 13082150 (Version 1)
Quarter: 2017Q1

REPORT INFORMATION
  Report Type: Spontaneous
  Country: US (occurrence: US)
  Receive Date: 20170103
  Receipt Date: 20170103
  Transmission Date: 20170428
  Serious: No
  Sender: FDA-Public Use
  Company Number: US-BAYER-2016-243460

PATIENT
  Age: 74 Year
  Sex: Female
  Weight: 66 kg

DRUGS (3)
  1. MIRALAX [Suspect]
     Active Substance: POLYETHYLENE GLYCOL 3350
     Indication: GASTROINTESTINAL DISORDER
     Dosage: 1 DF, UNK
     Route: 048
  2. VITAMINS [Concomitant]
     Active Substance: VITAMINS
     Dosage: UNK
  3. MIRAFIBER SUGAR FREE ORANGE POWDER [Suspect]
     Active Substance: METHYLCELLULOSES
     Indication: GASTROINTESTINAL DISORDER
     Dosage: 1 DF, TID (DAILY TABLESPOON)
     Route: 048

REACTIONS (4)
  - Off label use [Unknown]
  - Abdominal discomfort [Not Recovered/Not Resolved]
  - Abdominal distension [Recovered/Resolved]
  - Eating disorder [Recovered/Resolved]
